FAERS Safety Report 4451169-4 (Version None)
Quarter: 2004Q3

REPORT INFORMATION
  Report Type: 
  Country: None (occurrence: None)
  Receive Date: 20040915
  Receipt Date: 20040915
  Transmission Date: 20050211
  Serious: Yes (Death, Hospitalization)
  Sender: FDA-Public Use
  Company Number: None

PATIENT
  Age: 65 Year
  Sex: Male
  Weight: 111.2 kg

DRUGS (4)
  1. CYCLOPHOSPHAMIDE [Suspect]
     Indication: LYMPHOMA
     Dosage: 750 MG =1745 CYCLE 2
     Dates: start: 20040415
  2. DOXORUBICIN [Suspect]
     Indication: LYMPHOMA
     Dosage: 50 M2=116 CYCLE 2
     Dates: start: 20040415
  3. CHOP [Concomitant]
  4. RITUXAN [Concomitant]

REACTIONS (3)
  - COMA [None]
  - CONFUSIONAL STATE [None]
  - SEPTIC SHOCK [None]
